FAERS Safety Report 14691803 (Version 1)
Quarter: 2018Q1

REPORT INFORMATION
  Report Type: Report from Study
  Country: US (occurrence: US)
  Receive Date: 20180329
  Receipt Date: 20180329
  Transmission Date: 20180509
  Serious: Yes (Death, Other)
  Sender: FDA-Public Use
  Company Number: US-ROCHE-2096642

PATIENT
  Age: 57 Year
  Sex: Male

DRUGS (1)
  1. BEVACIZUMAB. [Suspect]
     Active Substance: BEVACIZUMAB
     Indication: PROSTATE CANCER
     Dosage: ON CYCLE 1 DAY 1 EVERY 21 DAYS.
     Route: 042

REACTIONS (4)
  - Embolism [Unknown]
  - Death [Fatal]
  - Thrombosis [Unknown]
  - Disease progression [Unknown]

NARRATIVE: CASE EVENT DATE: 20090722
